FAERS Safety Report 17499908 (Version 1)
Quarter: 2020Q1

REPORT INFORMATION
  Report Type: Spontaneous
  Country: US (occurrence: US)
  Receive Date: 20200305
  Receipt Date: 20200305
  Transmission Date: 20200409
  Serious: Yes (Other)
  Sender: FDA-Public Use
  Company Number: US-HETERO-HET2020US00217

PATIENT
  Age: 72 Year
  Sex: Female
  Weight: 48 kg

DRUGS (1)
  1. OSELTAMIVIR [Suspect]
     Active Substance: OSELTAMIVIR
     Indication: INFLUENZA
     Dosage: 75 MG, BID
     Route: 065
     Dates: start: 20200206, end: 20200210

REACTIONS (17)
  - Sleep disorder [Unknown]
  - Loss of personal independence in daily activities [Unknown]
  - Agitation [Unknown]
  - Delirium [Unknown]
  - Nausea [Unknown]
  - Dizziness [Unknown]
  - Hypersensitivity [Unknown]
  - Diarrhoea [Unknown]
  - Laryngitis [Unknown]
  - Dehydration [Unknown]
  - Blood sodium decreased [Unknown]
  - Mania [Unknown]
  - Eye irritation [Unknown]
  - Abdominal discomfort [Unknown]
  - Illogical thinking [Unknown]
  - Headache [Unknown]
  - Confusional state [Unknown]

NARRATIVE: CASE EVENT DATE: 20200210
